FAERS Safety Report 5717676-9 (Version None)
Quarter: 2008Q2

REPORT INFORMATION
  Report Type: 
  Country: None (occurrence: None)
  Receive Date: 20080425
  Receipt Date: 20080415
  Transmission Date: 20081010
  Serious: Yes (Other)
  Sender: FDA-Public Use
  Company Number: US-JNJFOC-20080404311

PATIENT
  Age: 68 Year
  Sex: Female

DRUGS (18)
  1. REMICADE [Suspect]
     Indication: RHEUMATOID ARTHRITIS
     Route: 042
  2. ALBUTEROL [Concomitant]
  3. ATACAND [Concomitant]
  4. METOPROLOL SUCCINATE [Concomitant]
  5. MORPHINE [Concomitant]
  6. NYSTATIN [Concomitant]
  7. SPIRIVA [Concomitant]
  8. WARFARIN SODIUM [Concomitant]
  9. MAGNESIUM OXIDE [Concomitant]
  10. METHOTREXATE [Concomitant]
     Route: 048
  11. FOSAMAX [Concomitant]
  12. CALCIUM+VITAMIN D [Concomitant]
  13. DEXAMETHASONE TAB [Concomitant]
  14. NEXIUM [Concomitant]
  15. FOLIC ACID [Concomitant]
  16. FUROSEMIDE [Concomitant]
  17. ACETAMINOPHEN AND HYDROCODONE BITARTRATE [Concomitant]
  18. ZOCOR [Concomitant]

REACTIONS (1)
  - LYMPHOMA [None]
